APPROVED DRUG PRODUCT: M.V.C. 9+3
Active Ingredient: ASCORBIC ACID; BIOTIN; CYANOCOBALAMIN; DEXPANTHENOL; ERGOCALCIFEROL; FOLIC ACID; NIACINAMIDE; PYRIDOXINE HYDROCHLORIDE; RIBOFLAVIN 5'-PHOSPHATE SODIUM; THIAMINE HYDROCHLORIDE; VITAMIN A; VITAMIN E
Strength: 10MG/ML;0.006MG/ML;0.5MCG/ML;1.5MG/ML;20 IU/ML;0.04MG/ML;4MG/ML;0.4MG/ML;0.36MG/ML;0.3MG/ML;330 UNITS/ML;1 IU/ML
Dosage Form/Route: INJECTABLE;INJECTION
Application: N018440 | Product #002
Applicant: ABRAXIS PHARMACEUTICAL PRODUCTS
Approved: Aug 8, 1985 | RLD: No | RS: No | Type: DISCN